FAERS Safety Report 4860769-9 (Version None)
Quarter: 2005Q4

REPORT INFORMATION
  Report Type: 
  Country: None (occurrence: None)
  Receive Date: 20051216
  Receipt Date: 20051201
  Transmission Date: 20060501
  Serious: Yes (Death, Hospitalization)
  Sender: FDA-Public Use
  Company Number: 5316

PATIENT
  Age: 79 Year
  Sex: Male

DRUGS (6)
  1. AMIODARONE [Suspect]
     Dosage: 200 MG DAILY PO
     Route: 048
  2. THYROXINE [Concomitant]
  3. FRUSEMIDE [Concomitant]
  4. ASPIRIN [Concomitant]
  5. ATORVASTATIN [Concomitant]
  6. RANITIDINE [Concomitant]

REACTIONS (18)
  - ASCITES [None]
  - BLOOD ALBUMIN ABNORMAL [None]
  - CARDIAC FAILURE [None]
  - COMA HEPATIC [None]
  - GENERAL PHYSICAL HEALTH DETERIORATION [None]
  - GYNAECOMASTIA [None]
  - HAEMATEMESIS [None]
  - HAEMOGLOBIN DECREASED [None]
  - HEPATIC CIRRHOSIS [None]
  - HEPATIC ENCEPHALOPATHY [None]
  - HEPATIC FAILURE [None]
  - HEPATIC NEOPLASM [None]
  - LETHARGY [None]
  - LIVER DISORDER [None]
  - PALMAR ERYTHEMA [None]
  - REFLUX OESOPHAGITIS [None]
  - RENAL FAILURE [None]
  - SPIDER NAEVUS [None]
